FAERS Safety Report 14920160 (Version 2)
Quarter: 2018Q2

REPORT INFORMATION
  Report Type: Report from Study
  Country: GB (occurrence: DE)
  Receive Date: 20180521
  Receipt Date: 20180525
  Transmission Date: 20180711
  Serious: Yes (Death)
  Sender: FDA-Public Use
  Company Number: GB-PFIZER INC-2018204535

PATIENT
  Age: 60 Year
  Sex: Female
  Weight: 40 kg

DRUGS (41)
  1. ISOKET [Suspect]
     Active Substance: ISOSORBIDE DINITRATE
     Indication: HYPERTENSION
     Dosage: 60 MG, 1X/DAY
     Route: 048
     Dates: start: 19980818
  2. DILATREND [Suspect]
     Active Substance: CARVEDILOL
     Indication: HYPERTENSION
     Dosage: 13 MG, 1X/DAY
     Route: 048
     Dates: start: 19980811
  3. TAVEGIL /00137201/ [Concomitant]
     Active Substance: CLEMASTINE FUMARATE
     Indication: ERYTHEMA
     Dosage: 1 (DAILY DOSE),
     Route: 042
     Dates: start: 19980826, end: 19980826
  4. PASPERTIN /00041902/ [Suspect]
     Active Substance: METOCLOPRAMIDE HYDROCHLORIDE
     Indication: NAUSEA
     Dosage: 20 GTT, UNK
     Route: 048
     Dates: start: 19980814, end: 19980818
  5. HEPARIN-CALCIUM [Suspect]
     Active Substance: HEPARIN CALCIUM
     Indication: THROMBOSIS PROPHYLAXIS
     Dosage: 15000 IU, 1X/DAY
     Route: 058
     Dates: start: 19980811, end: 19980818
  6. AQUAPHOR (XIPAMIDE) [Suspect]
     Active Substance: XIPAMIDE
  7. FRAGMIN P [Suspect]
     Active Substance: DALTEPARIN SODIUM
     Indication: THROMBOSIS PROPHYLAXIS
     Dosage: 1 DF, 1X/DAY
     Route: 058
     Dates: start: 19980818
  8. BENZYLPENICILLIN SODIUM [Suspect]
     Active Substance: PENICILLIN G SODIUM
     Indication: PNEUMONIA
     Dosage: 20 MILLION IU, 1X/DAY
     Route: 042
     Dates: start: 19980821, end: 19980826
  9. AMINOQUINURIDE HYDROCHLORIDE W/INSULIN ZINC S [Concomitant]
     Indication: DIABETES MELLITUS
     Dosage: 8 IU, 1X/DAY
     Route: 058
  10. GLUCOSE [Concomitant]
     Active Substance: DEXTROSE
     Indication: FLUID REPLACEMENT
     Dosage: 500 ML, 1X/DAY
     Route: 042
     Dates: start: 19980824, end: 19980824
  11. DIGIMERCK [Suspect]
     Active Substance: DIGITOXIN
     Indication: CARDIAC FAILURE
     Dosage: 1 DF, 1X/DAY
     Route: 048
     Dates: start: 19980812
  12. VANCOMYCIN [Suspect]
     Active Substance: VANCOMYCIN
     Indication: PNEUMONIA
     Dosage: UNK
     Route: 042
     Dates: start: 19980821, end: 19980826
  13. IRENAT [Concomitant]
     Active Substance: SODIUM PERCHLORATE
     Indication: HYPERTHYROIDISM
     Dosage: 60 GTT, 1X/DAY
     Route: 048
     Dates: end: 19980828
  14. CARBIMAZOL [Concomitant]
     Active Substance: CARBIMAZOLE
     Indication: HYPERTHYROIDISM
     Dosage: 20 MG, 1X/DAY
     Route: 048
  15. ENALAPRIL MALEATE. [Suspect]
     Active Substance: ENALAPRIL MALEATE
     Indication: HYPERTENSION
     Dosage: 10 MG, 1X/DAY
     Route: 048
     Dates: start: 19980811, end: 19980817
  16. UNAT /01036501/ [Suspect]
     Active Substance: TORSEMIDE
     Indication: CARDIAC FAILURE
     Dosage: 40 MG, 1X/DAY
     Route: 048
     Dates: start: 19980808
  17. KALIUMKLORID [Concomitant]
     Indication: BLOOD POTASSIUM DECREASED
     Dosage: 3 DF, 1X/DAY
     Route: 048
     Dates: start: 19980818, end: 19980820
  18. KALINOR-BRAUSETABLETTEN [Concomitant]
     Active Substance: POTASSIUM CARBONATE\POTASSIUM CITRATE
     Dosage: 1 DF, 1X/DAY
     Route: 048
     Dates: start: 19980824, end: 19980825
  19. TAGAMET [Concomitant]
     Active Substance: CIMETIDINE
     Indication: PROPHYLAXIS AGAINST GASTROINTESTINAL ULCER
     Dosage: 1 (DAILY DOSE),
     Route: 042
     Dates: start: 19980826, end: 19980826
  20. SORTIS [Concomitant]
     Active Substance: ATORVASTATIN
     Indication: LIPIDS INCREASED
     Dosage: 10 MG, 1X/DAY
     Route: 048
     Dates: start: 19980826
  21. NOVODIGAL /00017701/ [Concomitant]
     Active Substance: DIGOXIN
     Indication: CARDIAC FAILURE
     Dosage: 0.2 MG, 1X/DAY
     Route: 048
     Dates: end: 19980812
  22. LASIX [Suspect]
     Active Substance: FUROSEMIDE
     Indication: CARDIAC FAILURE
     Dosage: 1 DF, 1X/DAY
     Route: 048
     Dates: end: 19980406
  23. XANEF /00574902/ [Suspect]
     Active Substance: ENALAPRIL MALEATE
     Indication: HYPERTENSION
     Dosage: 10 MG, 1X/DAY
     Route: 048
     Dates: start: 19980818
  24. PASPERTIN /00041902/ [Suspect]
     Active Substance: METOCLOPRAMIDE HYDROCHLORIDE
     Dosage: 60 GTT, 1X/DAY
     Route: 048
     Dates: start: 19980820, end: 19980820
  25. ANTRA /00661201/ [Concomitant]
     Active Substance: OMEPRAZOLE
     Indication: PROPHYLAXIS AGAINST GASTROINTESTINAL ULCER
     Route: 048
     Dates: end: 19980818
  26. KALINOR-BRAUSETABLETTEN [Concomitant]
     Active Substance: POTASSIUM CARBONATE\POTASSIUM CITRATE
     Indication: BLOOD POTASSIUM DECREASED
     Dosage: 1 DF, 1X/DAY
     Route: 048
     Dates: start: 19980821, end: 19980821
  27. ZOCOR [Concomitant]
     Active Substance: SIMVASTATIN
     Indication: HYPERTENSION
     Dosage: 20 MG, 1X/DAY
     Route: 048
     Dates: start: 19980803, end: 19980818
  28. NOVALGIN /00169801/ [Suspect]
     Active Substance: ACETAMINOPHEN\CAFFEINE\PROPYPHENAZONE
     Indication: PAIN
     Dosage: 20 GTT, 1X/DAY
     Route: 048
     Dates: start: 19980811, end: 19980811
  29. POTASSIUM CHLORIDE. [Concomitant]
     Active Substance: POTASSIUM CHLORIDE
     Indication: BLOOD POTASSIUM DECREASED
     Dosage: 2 DF, 1X/DAY
     Route: 048
     Dates: start: 19980814, end: 19980814
  30. PARACETAMOL [Concomitant]
     Active Substance: ACETAMINOPHEN
     Indication: ANALGESIC THERAPY
     Dosage: 500 MG, 1X/DAY
     Route: 048
     Dates: start: 19980826
  31. EUGLUCON [Suspect]
     Active Substance: GLYBURIDE
     Indication: DIABETES MELLITUS
     Dosage: 1 DF, 1X/DAY
     Route: 048
     Dates: end: 19980818
  32. EUGLUCON [Suspect]
     Active Substance: GLYBURIDE
     Dosage: 1 DF, 1X/DAY
     Route: 048
     Dates: start: 19980820, end: 19980821
  33. ACETYLSALICYLIC ACID [Suspect]
     Active Substance: ASPIRIN
     Indication: THROMBOSIS PROPHYLAXIS
     Dosage: 100 MG, UNK
     Route: 048
  34. PASPERTIN /00041902/ [Suspect]
     Active Substance: METOCLOPRAMIDE HYDROCHLORIDE
     Dosage: 20 GTT, UNK
     Route: 048
     Dates: start: 19980821
  35. PASPERTIN /00041902/ [Concomitant]
     Active Substance: METOCLOPRAMIDE HYDROCHLORIDE
     Indication: NAUSEA
     Dosage: 60 GTT, 1X/DAY
     Route: 042
     Dates: start: 19980808, end: 19980826
  36. ZIENAM [Concomitant]
     Active Substance: CILASTATIN SODIUM\IMIPENEM
     Indication: SEPSIS
     Dosage: 1500 MG, 1X/DAY
     Route: 042
     Dates: start: 19980828
  37. KALIUMKLORID [Concomitant]
     Dosage: 6 MMOL, UNK
     Route: 042
     Dates: start: 19980828, end: 19980828
  38. LOPIRIN COR [Concomitant]
     Active Substance: CAPTOPRIL
     Indication: HYPERTENSION
     Dosage: 2 DF, 1X/DAY
     Route: 048
     Dates: end: 19980806
  39. SOLU-DECORTIN-H [Concomitant]
     Active Substance: PREDNISOLONE SODIUM SUCCINATE
     Indication: ERYTHEMA
     Dosage: 100 MG, 1X/DAY
     Route: 042
     Dates: start: 19980826, end: 19980826
  40. DEXPANTHENOL. [Concomitant]
     Active Substance: DEXPANTHENOL
     Indication: CIRCULATORY COLLAPSE
     Dosage: 4 (DAILY DOSE),
     Route: 042
     Dates: start: 19980808, end: 19980808
  41. DOPMIN /00360701/ [Concomitant]
     Indication: CIRCULATORY COLLAPSE
     Route: 042
     Dates: start: 19980808, end: 19980808

REACTIONS (2)
  - Circulatory collapse [Fatal]
  - Toxic epidermal necrolysis [Fatal]

NARRATIVE: CASE EVENT DATE: 19980826
